FAERS Safety Report 20945496 (Version 2)
Quarter: 2022Q2

REPORT INFORMATION
  Report Type: Spontaneous
  Country: JP (occurrence: JP)
  Receive Date: 20220610
  Receipt Date: 20220618
  Transmission Date: 20220720
  Serious: Yes (Hospitalization)
  Sender: FDA-Public Use
  Company Number: JP-JNJFOC-20220609281

PATIENT
  Sex: Female

DRUGS (3)
  1. REMINYL [Suspect]
     Active Substance: GALANTAMINE
     Indication: Product used for unknown indication
     Dosage: 4 MG
     Route: 048
  2. REMINYL [Suspect]
     Active Substance: GALANTAMINE
     Dosage: 4MG
     Route: 048
     Dates: end: 20220523
  3. REMINYL [Suspect]
     Active Substance: GALANTAMINE
     Dosage: START DATE 02/JUN/2022
     Route: 048

REACTIONS (4)
  - Urinary tract infection [Unknown]
  - Dysphagia [Recovered/Resolved]
  - Physical deconditioning [Recovered/Resolved]
  - Feeding disorder [Recovered/Resolved]

NARRATIVE: CASE EVENT DATE: 20220523
